FAERS Safety Report 6407228-X (Version None)
Quarter: 2009Q4

REPORT INFORMATION
  Report Type: 
  Country: None (occurrence: None)
  Receive Date: 20091015
  Receipt Date: 20091001
  Transmission Date: 20100525
  Serious: Yes (Death)
  Sender: FDA-Public Use
  Company Number: 2009AL006494

PATIENT
  Sex: Female

DRUGS (3)
  1. IRINOTECAN HYDROCHLORIDE [Suspect]
     Indication: COLORECTAL CANCER METASTATIC
     Dosage: IV
     Route: 042
  2. FLUOROURACIL [Concomitant]
  3. AVASTIN [Concomitant]

REACTIONS (1)
  - ABDOMINAL PAIN [None]
